FAERS Safety Report 12437269 (Version 1)
Quarter: 2016Q2

REPORT INFORMATION
  Report Type: Spontaneous
  Country: US (occurrence: US)
  Receive Date: 20160606
  Receipt Date: 20160606
  Transmission Date: 20160815
  Serious: Yes (Other)
  Sender: FDA-Public Use
  Company Number: US-BAUSCH-BL-2016-012620

PATIENT
  Sex: Female
  Weight: 92.16 kg

DRUGS (6)
  1. PREDNISONE. [Concomitant]
     Active Substance: PREDNISONE
     Indication: SARCOIDOSIS
     Route: 048
     Dates: start: 2005
  2. PREDNISONE. [Concomitant]
     Active Substance: PREDNISONE
     Indication: UVEITIS
  3. PREDNISONE. [Concomitant]
     Active Substance: PREDNISONE
     Indication: SARCOIDOSIS
     Route: 047
     Dates: start: 2005
  4. PREDNISONE. [Concomitant]
     Active Substance: PREDNISONE
     Indication: UVEITIS
  5. RETISERT [Suspect]
     Active Substance: FLUOCINOLONE ACETONIDE
     Indication: SARCOIDOSIS
     Dosage: IN BOTH EYES
     Route: 050
     Dates: start: 2009
  6. RETISERT [Suspect]
     Active Substance: FLUOCINOLONE ACETONIDE
     Indication: UVEITIS
     Dosage: IN THE RIGHT EYE
     Route: 050
     Dates: start: 2013

REACTIONS (4)
  - Blindness unilateral [Not Recovered/Not Resolved]
  - Device related infection [Recovered/Resolved]
  - Eye inflammation [Unknown]
  - Device breakage [Unknown]

NARRATIVE: CASE EVENT DATE: 2013
